FAERS Safety Report 9924766 (Version 2)
Quarter: 2014Q2

REPORT INFORMATION
  Report Type: Spontaneous
  Country: BR (occurrence: None)
  Receive Date: 20140220
  Receipt Date: 20140404
  Transmission Date: 20141212
  Serious: Yes (Hospitalization)
  Sender: FDA-Public Use
  Company Number: 2013-003868

PATIENT
  Sex: Female
  Weight: 69 kg

DRUGS (2)
  1. ACTONEL [Suspect]
     Indication: OSTEOPENIA
     Dosage: 150 MG ONCE DOSE ONLY, ORAL
     Route: 048
     Dates: start: 20131204, end: 20131204
  2. TIBOLONE (TIBOLONE) [Concomitant]

REACTIONS (12)
  - Tremor [None]
  - Pain [None]
  - Back pain [None]
  - Mobility decreased [None]
  - Pyrexia [None]
  - Nausea [None]
  - Headache [None]
  - Diarrhoea [None]
  - Vomiting [None]
  - Arthralgia [None]
  - Hypotension [None]
  - Malaise [None]
